FAERS Safety Report 23450973 (Version 1)
Quarter: 2024Q1

REPORT INFORMATION
  Report Type: Spontaneous
  Country: US (occurrence: None)
  Receive Date: 20240126
  Receipt Date: 20240126
  Transmission Date: 20240410
  Serious: Yes (Other)
  Sender: FDA-Public Use
  Company Number: None

PATIENT
  Age: 13 Week
  Sex: Female
  Weight: 6 kg

DRUGS (6)
  1. NIRSEVIMAB [Suspect]
     Active Substance: NIRSEVIMAB
     Dosage: OTHER FREQUENCY : ONCE;?
     Route: 030
     Dates: start: 20231215, end: 20231215
  2. PEDIARIX [Concomitant]
     Active Substance: DIPHTHERIA AND TETANUS TOXOIDS AND ACELLULAR PERTUSSIS AND HEPATITIS B AND INACTIVATED POLIOVIRUS VA
     Dates: start: 20231215, end: 20231215
  3. HEPATITIS B VIRUS VACCINE [Concomitant]
     Active Substance: HEPATITIS B VIRUS VACCINE
     Dates: start: 20231215, end: 20231215
  4. PCV20 [Concomitant]
     Dates: start: 20231215, end: 20231215
  5. Hib (PRP-OMP) [Concomitant]
     Dates: start: 20231215, end: 20231215
  6. ROTARIX [Concomitant]
     Active Substance: HUMAN ROTAVIRUS A TYPE G1P(8) STRAIN RIX4414 LIVE ANTIGEN
     Dates: start: 20231215, end: 20231215

REACTIONS (8)
  - Immune thrombocytopenia [None]
  - Immune thrombocytopenia [None]
  - Immature platelet fraction increased [None]
  - Petechiae [None]
  - Neutropenia [None]
  - Cytomegalovirus viraemia [None]
  - Myelosuppression [None]
  - Blood smear test abnormal [None]

NARRATIVE: CASE EVENT DATE: 20240102
